FAERS Safety Report 13949161 (Version 19)
Quarter: 2020Q2

REPORT INFORMATION
  Report Type: Spontaneous
  Country: BR (occurrence: BR)
  Receive Date: 20170908
  Receipt Date: 20200626
  Transmission Date: 20200713
  Serious: Yes (Other)
  Sender: FDA-Public Use
  Company Number: BR-GLAXOSMITHKLINE-BR2016GSK177634

PATIENT
  Age: 50 Year
  Sex: Female
  Weight: 95 kg

DRUGS (11)
  1. LABIRIN [Concomitant]
     Active Substance: BETAHISTINE
     Indication: PRODUCT USED FOR UNKNOWN INDICATION
     Dosage: UNK
  2. PREDNISONE. [Suspect]
     Active Substance: PREDNISONE
     Dosage: 5 MG, QD
     Dates: start: 20170109
  3. DIPYRONE [Concomitant]
     Active Substance: DIPYRONE
     Indication: PRODUCT USED FOR UNKNOWN INDICATION
     Dosage: UNK
  4. REUQUINOL [Concomitant]
     Active Substance: HYDROXYCHLOROQUINE SULFATE
     Indication: PRODUCT USED FOR UNKNOWN INDICATION
     Dosage: UNK
  5. HYDROXYCHLOROQUINE [Concomitant]
     Active Substance: HYDROXYCHLOROQUINE
     Dosage: 400 MG, UNK
  6. HYDROXYCHLOROQUINE [Concomitant]
     Active Substance: HYDROXYCHLOROQUINE
     Indication: SYSTEMIC LUPUS ERYTHEMATOSUS
     Dosage: UNK
     Dates: start: 2010
  7. PREDNISONE. [Suspect]
     Active Substance: PREDNISONE
     Indication: SYSTEMIC LUPUS ERYTHEMATOSUS
     Dosage: UNK
     Dates: start: 2010
  8. AZATHIOPRINE. [Concomitant]
     Active Substance: AZATHIOPRINE
     Indication: SYSTEMIC LUPUS ERYTHEMATOSUS
     Dosage: UNK
     Dates: start: 2010
  9. DECORTIN [Concomitant]
     Active Substance: PREDNISONE
     Indication: PRODUCT USED FOR UNKNOWN INDICATION
     Dosage: 20 MG
  10. BENLYSTA [Suspect]
     Active Substance: BELIMUMAB
     Indication: SYSTEMIC LUPUS ERYTHEMATOSUS
     Dosage: 840 MG, Z (120MG 7 TIMES EVERY MONTH.
     Route: 042
     Dates: start: 20161128
  11. AZATHIOPRINE. [Concomitant]
     Active Substance: AZATHIOPRINE
     Dosage: 1 DF(TABLET), QD
     Dates: start: 20170109

REACTIONS (42)
  - Pneumonia [Recovered/Resolved]
  - Vomiting [Recovered/Resolved]
  - Back injury [Recovered/Resolved]
  - Labyrinthitis [Recovered/Resolved]
  - Pyrexia [Recovered/Resolved]
  - Spinal osteoarthritis [Recovered/Resolved]
  - Memory impairment [Not Recovered/Not Resolved]
  - Shock [Recovered/Resolved]
  - Somnolence [Recovered/Resolved]
  - Tachycardia [Recovered/Resolved]
  - Weight decreased [Recovered/Resolved]
  - Chest pain [Recovered/Resolved]
  - Inappropriate schedule of product administration [Recovered/Resolved]
  - Diarrhoea [Recovered/Resolved]
  - Influenza [Recovered/Resolved]
  - Insomnia [Recovered/Resolved]
  - Anxiety [Recovered/Resolved]
  - Bacterial infection [Recovered/Resolved]
  - Emotional disorder [Recovered/Resolved]
  - Increased bronchial secretion [Recovered/Resolved]
  - Swelling face [Recovered/Resolved]
  - Cholelithiasis [Recovered/Resolved]
  - Abdominal pain upper [Recovered/Resolved]
  - Swelling [Recovered/Resolved]
  - Dizziness [Recovered/Resolved]
  - Arthralgia [Recovered/Resolved]
  - Weight increased [Recovered/Resolved]
  - Skin lesion [Recovered/Resolved]
  - Cough [Recovered/Resolved]
  - Headache [Recovered/Resolved]
  - Peripheral swelling [Recovered/Resolved]
  - Back pain [Recovered/Resolved]
  - Retching [Recovered/Resolved]
  - Catarrh [Recovered/Resolved]
  - Circumstance or information capable of leading to medication error [Recovered/Resolved]
  - Skin discolouration [Recovered/Resolved]
  - Pain [Recovered/Resolved]
  - Mouth injury [Unknown]
  - Underdose [Recovered/Resolved]
  - Decreased immune responsiveness [Recovered/Resolved]
  - Pruritus [Recovered/Resolved]
  - Product dose omission [Recovered/Resolved]

NARRATIVE: CASE EVENT DATE: 20170607
